FAERS Safety Report 13620103 (Version 1)
Quarter: 2017Q2

REPORT INFORMATION
  Report Type: Report from Study
  Country: RU (occurrence: RU)
  Receive Date: 20170607
  Receipt Date: 20170607
  Transmission Date: 20170830
  Serious: Yes (Other)
  Sender: FDA-Public Use
  Company Number: RU-ROCHE-1942374

PATIENT

DRUGS (2)
  1. CAPECITABINE. [Suspect]
     Active Substance: CAPECITABINE
     Indication: RECTAL CANCER
     Dosage: ON DAYS 1-14 STARTING ON THE FIRST DAY OF THE RADIATION
     Route: 048
  2. METRONIDAZOLE. [Suspect]
     Active Substance: METRONIDAZOLE
     Indication: RECTAL CANCER
     Dosage: 10 G/M2 IN A POLYMERIC COMPOSITION WAS ADMINISTERED PER RECTUM ON DAYS 3 AND 5.3-5 HOUR PRIOR TO HYP
     Route: 054

REACTIONS (6)
  - Alanine aminotransferase increased [Unknown]
  - Vomiting [Unknown]
  - Nausea [Unknown]
  - Proctitis [Unknown]
  - Diarrhoea [Unknown]
  - Aspartate aminotransferase increased [Unknown]
